FAERS Safety Report 8003823-5 (Version None)
Quarter: 2011Q4

REPORT INFORMATION
  Report Type: 
  Country: None (occurrence: None)
  Receive Date: 20111222
  Receipt Date: 20111213
  Transmission Date: 20120403
  Serious: Yes (Other)
  Sender: FDA-Public Use
  Company Number: CN-ASTRAZENECA-2011SE75507

PATIENT
  Sex: Female

DRUGS (7)
  1. REMIFENTANIL [Suspect]
     Indication: ANAESTHESIA
     Dosage: 0.1-0.3 UG/KG.MIN
     Route: 042
  2. PROPOFOL [Suspect]
     Indication: ANAESTHESIA
     Route: 042
  3. FENTANYL [Suspect]
     Indication: ANAESTHESIA
     Route: 042
  4. PROPOFOL [Suspect]
     Dosage: 6-8 MG/KG.MIN
     Route: 042
  5. FENTANYL [Suspect]
     Route: 042
  6. CISATRACURIUM BESYLATE [Suspect]
     Indication: ANAESTHESIA
     Route: 042
  7. ATROPINE [Suspect]
     Route: 030

REACTIONS (1)
  - RESPIRATORY DEPRESSION [None]
